FAERS Safety Report 8123053-6 (Version None)
Quarter: 2012Q1

REPORT INFORMATION
  Report Type: 
  Country: None (occurrence: None)
  Receive Date: 20120208
  Receipt Date: 20120201
  Transmission Date: 20120608
  Serious: Yes (Other)
  Sender: FDA-Public Use
  Company Number: US-PFIZER INC-2012014893

PATIENT
  Sex: Female
  Weight: 72.562 kg

DRUGS (1)
  1. ZOLOFT [Suspect]
     Indication: MAJOR DEPRESSION
     Dosage: 50 MG, 1X/DAY
     Route: 048
     Dates: start: 20070101

REACTIONS (2)
  - INSOMNIA [None]
  - HYPERTENSION [None]
